FAERS Safety Report 5066389-8 (Version None)
Quarter: 2006Q3

REPORT INFORMATION
  Report Type: 
  Country: None (occurrence: None)
  Receive Date: 20060801
  Receipt Date: 20060727
  Transmission Date: 20061208
  Serious: Yes (Life-Threatening)
  Sender: FDA-Public Use
  Company Number: FR-AVENTIS-200612654FR

PATIENT
  Age: 55 Year
  Sex: Male

DRUGS (4)
  1. TRIATEC [Suspect]
     Route: 048
     Dates: start: 20060711, end: 20060719
  2. LOVENOX [Suspect]
     Route: 042
     Dates: start: 20060714, end: 20060719
  3. DOGOXINE [Suspect]
     Route: 048
     Dates: start: 20060629, end: 20060719
  4. TEGELINE [Suspect]
     Route: 042
     Dates: start: 20060717, end: 20060717

REACTIONS (2)
  - HAEMODIALYSIS [None]
  - RENAL FAILURE ACUTE [None]
